FAERS Safety Report 5832186-6 (Version None)
Quarter: 2008Q3

REPORT INFORMATION
  Report Type: 
  Country: None (occurrence: None)
  Receive Date: 20080804
  Receipt Date: 20080730
  Transmission Date: 20090109
  Serious: Yes (Hospitalization)
  Sender: FDA-Public Use
  Company Number: TH-AVENTIS-200815864GDDC

PATIENT
  Age: 56 Year
  Sex: Male
  Weight: 50 kg

DRUGS (6)
  1. TAXOTERE [Suspect]
     Route: 042
     Dates: start: 20080513, end: 20080513
  2. CARBOPLATIN [Suspect]
     Route: 042
     Dates: start: 20080513, end: 20080513
  3. DICLOXACILLIN [Concomitant]
  4. TRAMADOL HYDROCHLORIDE [Concomitant]
  5. GABAPENTIN [Concomitant]
  6. PARACETAMOL [Concomitant]
     Dosage: DOSE: 500 MG 2 TABLETS

REACTIONS (1)
  - HYPONATRAEMIA [None]
